FAERS Safety Report 4875810-7 (Version None)
Quarter: 2006Q1

REPORT INFORMATION
  Report Type: 
  Country: None (occurrence: None)
  Receive Date: 20060106
  Receipt Date: 20050824
  Transmission Date: 20060701
  Serious: Yes (Other)
  Sender: FDA-Public Use
  Company Number: 200507432

PATIENT
  Age: 80 Year
  Sex: Female

DRUGS (5)
  1. ALPHAGAN P [Suspect]
     Indication: GLAUCOMA
     Dosage: 2 DROP BID EYE
     Dates: start: 20030119, end: 20030928
  2. UNSPECIFIED STEOIRDS [Concomitant]
  3. UNSPECIFIED ANTIBIOTICS [Concomitant]
  4. FML UNSPECIFIED [Concomitant]
  5. DYAZIDE [Concomitant]

REACTIONS (10)
  - ARTERIAL REPAIR [None]
  - CATARACT OPERATION [None]
  - DRUG HYPERSENSITIVITY [None]
  - ERYTHEMA OF EYELID [None]
  - EYELID EXFOLIATION [None]
  - FACIAL PALSY [None]
  - IRITIS [None]
  - MACULAR DEGENERATION [None]
  - POST PROCEDURAL COMPLICATION [None]
  - RETINAL NEOVASCULARISATION [None]
